FAERS Safety Report 8049880-1 (Version None)
Quarter: 2012Q1

REPORT INFORMATION
  Report Type: 
  Country: None (occurrence: None)
  Receive Date: 20120117
  Receipt Date: 20120112
  Transmission Date: 20120608
  Serious: No
  Sender: FDA-Public Use
  Company Number: US-PFIZER INC-2012009859

PATIENT
  Sex: Female
  Weight: 63.492 kg

DRUGS (2)
  1. ADVIL CONGESTION RELIEF [Suspect]
     Indication: NASOPHARYNGITIS
  2. ADVIL CONGESTION RELIEF [Suspect]
     Indication: SINUS CONGESTION
     Dosage: 200 MG, 2X/DAY
     Route: 048
     Dates: start: 20120108, end: 20120111

REACTIONS (1)
  - PRURITUS GENERALISED [None]
